FAERS Safety Report 7204057-4 (Version None)
Quarter: 2010Q4

REPORT INFORMATION
  Report Type: 
  Country: None (occurrence: None)
  Receive Date: 20101230
  Receipt Date: 20101227
  Transmission Date: 20110411
  Serious: Yes (Hospitalization)
  Sender: FDA-Public Use
  Company Number: JP-BRACCO-004355

PATIENT
  Age: 87 Year
  Sex: Female

DRUGS (2)
  1. IOPAMIDOL [Suspect]
     Indication: COMPUTERISED TOMOGRAM
     Route: 042
     Dates: start: 20090603, end: 20090603
  2. IOPAMIDOL [Suspect]
     Indication: ARTERIAL OCCLUSIVE DISEASE
     Route: 042
     Dates: start: 20090603, end: 20090603

REACTIONS (1)
  - INJECTION SITE EXTRAVASATION [None]
